FAERS Safety Report 5298285-5 (Version None)
Quarter: 2007Q2

REPORT INFORMATION
  Report Type: 
  Country: None (occurrence: None)
  Receive Date: 20070409
  Receipt Date: 20070323
  Transmission Date: 20071010
  Serious: Yes (Hospitalization, Other)
  Sender: FDA-Public Use
  Company Number: 000269

PATIENT
  Sex: Female

DRUGS (3)
  1. ZEVALIN [Suspect]
     Indication: NON-HODGKIN'S LYMPHOMA
     Dosage: 1X;IV
     Route: 042
     Dates: start: 20020307, end: 20020307
  2. ZEVALIN [Suspect]
     Indication: NON-HODGKIN'S LYMPHOMA
     Dosage: 0.4 MCI/KG
     Dates: start: 20020314, end: 20020314
  3. RITUXIMAB [Concomitant]

REACTIONS (11)
  - BLOOD BLISTER [None]
  - BONE MARROW FAILURE [None]
  - CONTUSION [None]
  - DRUG TOXICITY [None]
  - EPISTAXIS [None]
  - HAEMORRHAGE [None]
  - INFECTION [None]
  - MACROCYTOSIS [None]
  - MUCOSAL HAEMORRHAGE [None]
  - NEUTROPENIC SEPSIS [None]
  - THROMBOCYTOPENIA [None]
